FAERS Safety Report 8815692 (Version 1)
Quarter: 2012Q4

REPORT INFORMATION
  Report Type: 
  Country: JP (occurrence: JP)
  Receive Date: 20120928
  Receipt Date: 20120928
  Transmission Date: 20130627
  Serious: Yes (Other)
  Sender: FDA-Public Use
  Company Number: JP-ASTRAZENECA-2012SE73575

PATIENT
  Weight: 2 kg

DRUGS (6)
  1. MARCAIN SPINAL [Suspect]
     Route: 064
  2. PREDONINE [Concomitant]
     Route: 064
  3. HYDROXYETHYLATED STARCH [Concomitant]
     Route: 064
  4. FENTANYL CITRATE [Concomitant]
     Route: 064
  5. EPHEDRINE HYDROCHLORIDE [Concomitant]
     Route: 064
  6. PHENYLEPHRINE HYDROCHLORIDE [Concomitant]
     Route: 064

REACTIONS (1)
  - Acidosis [Unknown]
